FAERS Safety Report 20733027 (Version 1)
Quarter: 2022Q2

REPORT INFORMATION
  Report Type: Spontaneous
  Country: US (occurrence: None)
  Receive Date: 20220421
  Receipt Date: 20220421
  Transmission Date: 20220720
  Serious: No
  Sender: FDA-Public Use
  Company Number: 2022A147374

PATIENT
  Sex: Female
  Weight: 122.5 kg

DRUGS (2)
  1. FARXIGA [Suspect]
     Active Substance: DAPAGLIFLOZIN PROPANEDIOL
     Indication: Glycosylated haemoglobin abnormal
     Route: 048
     Dates: start: 20220328
  2. FARXIGA [Suspect]
     Active Substance: DAPAGLIFLOZIN PROPANEDIOL
     Indication: Weight abnormal
     Route: 048
     Dates: start: 20220328

REACTIONS (1)
  - Fatigue [Unknown]
